FAERS Safety Report 4352721-7 (Version None)
Quarter: 2004Q2

REPORT INFORMATION
  Report Type: 
  Country: None (occurrence: None)
  Receive Date: 20040504
  Receipt Date: 20040427
  Transmission Date: 20050107
  Serious: Yes (Other)
  Sender: FDA-Public Use
  Company Number: CA-GLAXOSMITHKLINE-A0509095A

PATIENT
  Age: 60 Year
  Sex: Male

DRUGS (3)
  1. REQUIP [Suspect]
     Indication: DRUG USE FOR UNKNOWN INDICATION
     Dosage: 5MG FOUR TIMES PER DAY
     Route: 048
     Dates: start: 19991001, end: 20040101
  2. SINEMET [Concomitant]
     Indication: DRUG USE FOR UNKNOWN INDICATION
     Dosage: 2TAB THREE TIMES PER DAY
     Route: 048
  3. DOMPERIDON [Concomitant]
     Indication: DRUG USE FOR UNKNOWN INDICATION
     Dosage: 10MG FOUR TIMES PER DAY
     Route: 048

REACTIONS (2)
  - MEDICATION ERROR [None]
  - PITTING OEDEMA [None]
